FAERS Safety Report 8600694-0 (Version None)
Quarter: 2012Q3

REPORT INFORMATION
  Report Type: 
  Country: None (occurrence: None)
  Receive Date: 20120803
  Receipt Date: 20120724
  Transmission Date: 20120928
  Serious: Yes (Life-Threatening, Hospitalization)
  Sender: FDA-Public Use
  Company Number: 2012P1048912

PATIENT
  Age: 29 Year
  Sex: Female

DRUGS (1)
  1. AMPHETAMINES [Suspect]
     Dosage: INH
     Route: 055

REACTIONS (9)
  - CEREBRAL HAEMORRHAGE [None]
  - FALL [None]
  - MONOPLEGIA [None]
  - CLONUS [None]
  - DRUG ABUSE [None]
  - INCORRECT ROUTE OF DRUG ADMINISTRATION [None]
  - HYPERREFLEXIA [None]
  - EPILEPSY [None]
  - SPASTIC PARALYSIS [None]
